FAERS Safety Report 21989304 (Version 1)
Quarter: 2023Q1

REPORT INFORMATION
  Report Type: Spontaneous
  Country: US (occurrence: None)
  Receive Date: 20230212
  Receipt Date: 20230212
  Transmission Date: 20230417
  Serious: Yes (Other)
  Sender: FDA-Public Use
  Company Number: None

PATIENT
  Age: 70 Year
  Sex: Female
  Weight: 63 kg

DRUGS (7)
  1. EVENITY [Suspect]
     Active Substance: ROMOSOZUMAB-AQQG
     Indication: Osteoporosis
     Dosage: OTHER FREQUENCY : MONTHLY INJECTIONS;?OTHER ROUTE : INJECTION INTO ABDOMEN, ARM OR THIGH;?
     Route: 050
     Dates: start: 20220422
  2. ASCORBIC ACID [Concomitant]
     Active Substance: ASCORBIC ACID
  3. MULTI-VITAMIN [Concomitant]
     Active Substance: .ALPHA.-TOCOPHEROL ACETATE, DL-\ASCORBIC ACID\CYANOCOBALAMIN\FLUORIDE ION\FOLIC ACID\NIACIN\PYRIDOXI
  4. FISH OIL [Concomitant]
  5. MAGNESIUM [Concomitant]
  6. CALCIUM [Concomitant]
  7. ZINC [Concomitant]
     Active Substance: ZINC

REACTIONS (8)
  - Chest pain [None]
  - Pain [None]
  - Lethargy [None]
  - Abdominal discomfort [None]
  - Dizziness [None]
  - Insomnia [None]
  - Listless [None]
  - Depressed mood [None]

NARRATIVE: CASE EVENT DATE: 20230211
